FAERS Safety Report 6676777-1 (Version None)
Quarter: 2010Q2

REPORT INFORMATION
  Report Type: 
  Country: None (occurrence: None)
  Receive Date: 20100408
  Receipt Date: 20100331
  Transmission Date: 20101027
  Serious: Yes (Other)
  Sender: FDA-Public Use
  Company Number: 2010SP019311

PATIENT

DRUGS (1)
  1. SAPHRIS [Suspect]
     Indication: DRUG USE FOR UNKNOWN INDICATION
     Dosage: SL

REACTIONS (1)
  - PHOTOSENSITIVITY REACTION [None]
